FAERS Safety Report 4348561-5 (Version None)
Quarter: 2004Q2

REPORT INFORMATION
  Report Type: 
  Country: None (occurrence: None)
  Receive Date: 20040427
  Receipt Date: 20040305
  Transmission Date: 20050107
  Serious: Yes (Hospitalization)
  Sender: FDA-Public Use
  Company Number: GB-BRISTOL-MYERS SQUIBB COMPANY-12541546

PATIENT
  Age: 77 Year
  Sex: Male
  Weight: 60 kg

DRUGS (4)
  1. IRBESARTAN TABS 300 MG [Suspect]
     Indication: HYPERTENSION
     Route: 048
     Dates: start: 20020109, end: 20040123
  2. BENDROFLUAZIDE [Concomitant]
     Indication: HYPERTENSION
     Dates: start: 20031229
  3. PROPRANOLOL [Concomitant]
     Indication: HYPERTENSION
     Route: 048
     Dates: start: 20031229
  4. MULTI-VITAMINS [Concomitant]
     Dosage: 1 TABLET DAILY
     Route: 048
     Dates: start: 20040209

REACTIONS (6)
  - ANOREXIA [None]
  - ASTHENIA [None]
  - ERYTHEMA NODOSUM [None]
  - PYREXIA [None]
  - RED BLOOD CELL SEDIMENTATION RATE INCREASED [None]
  - WEIGHT DECREASED [None]
